FAERS Safety Report 10565391 (Version 2)
Quarter: 2015Q1

REPORT INFORMATION
  Report Type: Report from Study
  Country: CA (occurrence: CA)
  Receive Date: 20141105
  Receipt Date: 20150211
  Transmission Date: 20150720
  Serious: Yes (Life-Threatening, Hospitalization, Other)
  Sender: FDA-Public Use
  Company Number: CA-ROCHE-1483442

PATIENT
  Sex: Female

DRUGS (12)
  1. IRINOTECAN [Suspect]
     Active Substance: IRINOTECAN
     Indication: COLORECTAL CANCER METASTATIC
     Route: 042
     Dates: start: 201201, end: 20121008
  2. HYDROMORPHONE [Concomitant]
     Active Substance: HYDROMORPHONE
  3. APREPITANT. [Concomitant]
     Active Substance: APREPITANT
     Dosage: WITH CHEMO
     Route: 065
  4. ONDANSETRON [Concomitant]
     Active Substance: ONDANSETRON
  5. HALOPERIDOL. [Concomitant]
     Active Substance: HALOPERIDOL
  6. RAMIPRIL. [Concomitant]
     Active Substance: RAMIPRIL
  7. 5-FU [Suspect]
     Active Substance: FLUOROURACIL
     Indication: COLORECTAL CANCER METASTATIC
     Route: 042
     Dates: start: 201201, end: 20121008
  8. FOLINIC ACID [Concomitant]
     Active Substance: LEUCOVORIN
     Dosage: FOLFOX (22/OCT/2014)
     Route: 065
  9. OXALIPLATIN. [Concomitant]
     Active Substance: OXALIPLATIN
     Dosage: FOLFOX (22/OCT/2014)
     Route: 065
  10. AVASTIN [Suspect]
     Active Substance: BEVACIZUMAB
     Indication: COLORECTAL CANCER METASTATIC
     Route: 042
     Dates: start: 201201, end: 20121008
  11. METOCLOPRAMIDE. [Concomitant]
     Active Substance: METOCLOPRAMIDE
     Indication: NAUSEA
  12. AVASTIN [Suspect]
     Active Substance: BEVACIZUMAB
     Route: 042
     Dates: start: 20150106

REACTIONS (6)
  - Anxiety [Unknown]
  - Pain in extremity [Unknown]
  - Malignant neoplasm progression [Unknown]
  - Gastrointestinal anastomotic leak [Unknown]
  - Nausea [Unknown]
  - Hypertension [Unknown]

NARRATIVE: CASE EVENT DATE: 2012
